FAERS Safety Report 9414428 (Version 2)
Quarter: 2013Q3

REPORT INFORMATION
  Report Type: Spontaneous
  Country: CZ (occurrence: None)
  Receive Date: 20130717
  Receipt Date: 20130729
  Transmission Date: 20140515
  Serious: Yes (Hospitalization)
  Sender: FDA-Public Use
  Company Number: 2013000162

PATIENT
  Age: 78 Year
  Sex: Female
  Weight: 57 kg

DRUGS (2)
  1. ACEON [Suspect]
     Indication: HYPERTENSION
     Route: 048
     Dates: start: 2008, end: 2012
  2. TULIP (ATORVASTATIN) [Concomitant]
     Indication: PRODUCT USED FOR UNKNOWN INDICATION
     Dates: start: 2013, end: 2013

REACTIONS (4)
  - Vomiting [None]
  - Hypertension [None]
  - Oedema peripheral [None]
  - Drug ineffective [None]
